FAERS Safety Report 6510485-2 (Version None)
Quarter: 2009Q4

REPORT INFORMATION
  Report Type: 
  Country: None (occurrence: None)
  Receive Date: 20091217
  Receipt Date: 20091120
  Transmission Date: 20100525
  Serious: Yes (Disabling, Other)
  Sender: FDA-Public Use
  Company Number: GB-EBEWE-0892MTX09

PATIENT
  Age: 68 Year
  Sex: Male

DRUGS (3)
  1. METHOTREXATE [Suspect]
     Indication: PSORIASIS
     Dosage: 12MG, ORAL
     Route: 048
  2. DIAZEPAM [Concomitant]
  3. FENTANYL-100 [Concomitant]

REACTIONS (1)
  - CLAUSTROPHOBIA [None]
